FAERS Safety Report 26062390 (Version 1)
Quarter: 2025Q4

REPORT INFORMATION
  Report Type: Spontaneous
  Country: US (occurrence: US)
  Receive Date: 20251119
  Receipt Date: 20251119
  Transmission Date: 20260118
  Serious: No
  Sender: AZURITY PHARMACEUTICALS
  Company Number: US-AZURITY PHARMACEUTICALS, INC.-AZR202509-003056

PATIENT
  Sex: Female

DRUGS (2)
  1. DANZITEN [Suspect]
     Active Substance: NILOTINIB
     Indication: Philadelphia positive chronic myeloid leukaemia
     Dosage: 190 MILLIGRAM, Q12H
     Route: 065
     Dates: start: 20250911
  2. DANZITEN [Suspect]
     Active Substance: NILOTINIB
     Dosage: 95 MILLIGRAM, BID
     Route: 065

REACTIONS (4)
  - Irritability [Unknown]
  - Hypersensitivity [Unknown]
  - Erythema [Unknown]
  - Headache [Unknown]

NARRATIVE: CASE EVENT DATE: 20250101
